FAERS Safety Report 9803127 (Version 1)
Quarter: 2014Q1

REPORT INFORMATION
  Report Type: Spontaneous
  Country: US (occurrence: None)
  Receive Date: 20140107
  Receipt Date: 20140107
  Transmission Date: 20141002
  Serious: Yes (Other)
  Sender: FDA-Public Use
  Company Number: None

PATIENT
  Age: 61 Year
  Sex: Male
  Weight: 102.51 kg

DRUGS (1)
  1. AXIRON [Suspect]
     Indication: BLOOD TESTOSTERONE DECREASED
     Dosage: ONE APPLICATION PER ARM ONCE DAILY APPLIED TO A SURFACE, USUALL THE SKIN
     Dates: start: 20131214, end: 20131215

REACTIONS (3)
  - Dermatitis [None]
  - Pruritus [None]
  - Burning sensation [None]
